FAERS Safety Report 9439774 (Version 1)
Quarter: 2013Q3

REPORT INFORMATION
  Report Type: Spontaneous
  Country: MX (occurrence: MX)
  Receive Date: 20130805
  Receipt Date: 20130805
  Transmission Date: 20140515
  Serious: Yes (Hospitalization)
  Sender: FDA-Public Use
  Company Number: MX-JNJFOC-20130716955

PATIENT
  Age: 27 Year
  Sex: Female

DRUGS (2)
  1. XARELTO [Suspect]
     Indication: THROMBOSIS PROPHYLAXIS
     Route: 048
     Dates: start: 201305, end: 2013
  2. XARELTO [Suspect]
     Indication: THROMBOSIS
     Route: 048
     Dates: start: 201305, end: 2013

REACTIONS (8)
  - Chest discomfort [Recovering/Resolving]
  - Fatigue [Recovering/Resolving]
  - Dry skin [Recovering/Resolving]
  - Tachycardia [Recovering/Resolving]
  - Dizziness [Recovering/Resolving]
  - Headache [Recovering/Resolving]
  - Hypotension [Recovering/Resolving]
  - Blood urine present [Recovering/Resolving]
